FAERS Safety Report 13423253 (Version 4)
Quarter: 2017Q3

REPORT INFORMATION
  Report Type: Report from Study
  Country: GB (occurrence: GB)
  Receive Date: 20170410
  Receipt Date: 20170710
  Transmission Date: 20171127
  Serious: Yes (Other)
  Sender: FDA-Public Use
  Company Number: GB-JNJFOC-20170407511

PATIENT
  Sex: Male

DRUGS (1)
  1. SIMPONI [Suspect]
     Active Substance: GOLIMUMAB
     Indication: COLITIS ULCERATIVE
     Route: 058
     Dates: start: 20170214

REACTIONS (4)
  - Haematochezia [Recovering/Resolving]
  - Dysuria [Recovered/Resolved]
  - Fatigue [Recovered/Resolved]
  - Defaecation urgency [Recovering/Resolving]

NARRATIVE: CASE EVENT DATE: 2017
